FAERS Safety Report 22761556 (Version 2)
Quarter: 2024Q1

REPORT INFORMATION
  Report Type: Spontaneous
  Country: US (occurrence: US)
  Receive Date: 20230728
  Receipt Date: 20240103
  Transmission Date: 20240410
  Serious: Yes (Hospitalization, Other)
  Sender: FDA-Public Use
  Company Number: US-PFIZER INC-202101688157

PATIENT
  Age: 60 Year
  Sex: Female
  Weight: 63.96 kg

DRUGS (8)
  1. IBRANCE [Suspect]
     Active Substance: PALBOCICLIB
     Indication: Breast cancer metastatic
     Dosage: 100 MG
  2. IBRANCE [Suspect]
     Active Substance: PALBOCICLIB
     Dosage: 75 MG, CYCLIC (21 DAYS ON 7 OFF)
     Dates: start: 20210128
  3. METOPROLOL [Concomitant]
     Active Substance: METOPROLOL
     Indication: Hypertension
     Dosage: 25 MG, 1X/DAY
  4. PANTOPRAZOLE [Concomitant]
     Active Substance: PANTOPRAZOLE
     Indication: Acid base balance
     Dosage: 40 MG, 1X/DAY
  5. ANASTROZOLE [Concomitant]
     Active Substance: ANASTROZOLE
     Dosage: 1 MG, 1X/DAY
  6. CITALOPRAM [Concomitant]
     Active Substance: CITALOPRAM HYDROBROMIDE
     Indication: Depression
     Dosage: 20 MG, 1X/DAY
  7. MIRTAZAPINE [Concomitant]
     Active Substance: MIRTAZAPINE
     Dosage: 15 MG
  8. XANAX [Concomitant]
     Active Substance: ALPRAZOLAM
     Indication: Insomnia
     Dosage: 0.5 MG

REACTIONS (3)
  - Intestinal ischaemia [Unknown]
  - Product dose omission issue [Unknown]
  - Somnolence [Not Recovered/Not Resolved]
